FAERS Safety Report 12067662 (Version 1)
Quarter: 2016Q1

REPORT INFORMATION
  Report Type: Spontaneous
  Country: US (occurrence: None)
  Receive Date: 20160210
  Receipt Date: 20160210
  Transmission Date: 20160526
  Serious: Yes (Hospitalization)
  Sender: FDA-Public Use
  Company Number: None

PATIENT
  Age: 70 Year
  Sex: Male
  Weight: 95.3 kg

DRUGS (2)
  1. LEUPOROLIDE ACETATE [Suspect]
     Active Substance: LEUPROLIDE ACETATE
     Dates: end: 20151207
  2. CASODEX [Suspect]
     Active Substance: BICALUTAMIDE
     Dates: end: 20160125

REACTIONS (4)
  - Electrocardiogram abnormal [None]
  - Acute coronary syndrome [None]
  - Coronary artery bypass [None]
  - Angina pectoris [None]

NARRATIVE: CASE EVENT DATE: 20160126
